FAERS Safety Report 5186384-8 (Version None)
Quarter: 2006Q4

REPORT INFORMATION
  Report Type: 
  Country: None (occurrence: None)
  Receive Date: 20061213
  Receipt Date: 20061130
  Transmission Date: 20070319
  Serious: Yes (Hospitalization, Other)
  Sender: FDA-Public Use
  Company Number: 2006143290

PATIENT
  Age: 59 Year
  Sex: Female

DRUGS (7)
  1. ZYVOX [Suspect]
     Indication: STAPHYLOCOCCAL INFECTION
     Dosage: 1200 MG (600 MG, 2 IN 1 D), INTRAVENOUS
     Route: 042
     Dates: start: 20061030, end: 20061103
  2. DEPAS (ETIZOLAM) [Concomitant]
  3. ZOLPIDEM TARTRATE [Concomitant]
  4. VOLTAREN [Concomitant]
  5. LOXONIN         (LOXOPROFEN SODIUM) [Concomitant]
  6. HABEKACIN                          (ARBEKACIN) [Concomitant]
  7. MUCOSTA          (REBAMIPIDE) [Concomitant]

REACTIONS (3)
  - ANAEMIA [None]
  - DIZZINESS [None]
  - HYPERKALAEMIA [None]
